FAERS Safety Report 7833164-8 (Version None)
Quarter: 2011Q4

REPORT INFORMATION
  Report Type: 
  Country: None (occurrence: None)
  Receive Date: 20111024
  Receipt Date: 20111013
  Transmission Date: 20120403
  Serious: Yes (Other)
  Sender: FDA-Public Use
  Company Number: KR-JNJFOC-20111007470

PATIENT
  Sex: Male

DRUGS (6)
  1. CONCERTA [Suspect]
     Route: 048
     Dates: start: 20110501
  2. CONCERTA [Suspect]
     Route: 048
     Dates: start: 20050101
  3. CONCERTA [Suspect]
     Route: 048
     Dates: start: 20050101
  4. CONCERTA [Suspect]
     Indication: ATTENTION DEFICIT/HYPERACTIVITY DISORDER
     Route: 048
     Dates: start: 20110401
  5. CONCERTA [Suspect]
     Route: 048
     Dates: start: 20080801
  6. RISPERIDONE [Concomitant]
     Indication: PRODUCT USED FOR UNKNOWN INDICATION
     Route: 065
     Dates: start: 20110101

REACTIONS (2)
  - DRUG INEFFECTIVE [None]
  - TRICHOTILLOMANIA [None]
